FAERS Safety Report 8164277-1 (Version None)
Quarter: 2012Q1

REPORT INFORMATION
  Report Type: 
  Country: None (occurrence: None)
  Receive Date: 20120224
  Receipt Date: 20120119
  Transmission Date: 20120608
  Serious: Yes (Other)
  Sender: FDA-Public Use
  Company Number: US-ASTRAZENECA-2012SE03884

PATIENT
  Age: 41 Year
  Sex: Male

DRUGS (3)
  1. ANTIBIOTICS [Suspect]
  2. STEROIDS [Suspect]
  3. VIMOVO [Suspect]
     Dosage: 500MGS/20MGS
     Route: 048
     Dates: start: 20110101

REACTIONS (1)
  - GASTROINTESTINAL HAEMORRHAGE [None]
